FAERS Safety Report 9498224 (Version 3)
Quarter: 2013Q4

REPORT INFORMATION
  Report Type: Report from Study
  Country: US (occurrence: US)
  Receive Date: 20130904
  Receipt Date: 20131002
  Transmission Date: 20140711
  Serious: Yes (Other)
  Sender: FDA-Public Use
  Company Number: US-ACTELION-A-US2013-87270

PATIENT
  Age: 67 Year
  Sex: Female

DRUGS (2)
  1. TRACLEER [Suspect]
     Indication: PULMONARY ARTERIAL HYPERTENSION
     Dosage: UNK
     Route: 048
  2. SILDENAFIL [Concomitant]

REACTIONS (6)
  - Atrial fibrillation [Recovering/Resolving]
  - Cardiac ablation [Recovering/Resolving]
  - Respiratory tract infection [Recovered/Resolved]
  - Respiratory tract congestion [Recovered/Resolved]
  - Dyspnoea [Recovered/Resolved]
  - Pain [Unknown]
